FAERS Safety Report 19079671 (Version 1)
Quarter: 2021Q1

REPORT INFORMATION
  Report Type: Spontaneous
  Country: IN (occurrence: IN)
  Receive Date: 20210331
  Receipt Date: 20210331
  Transmission Date: 20210420
  Serious: Yes (Life-Threatening, Hospitalization, Other)
  Sender: FDA-Public Use
  Company Number: IN-VALIDUS PHARMACEUTICALS LLC-IN-2021VAL000127

PATIENT
  Age: 22 Year
  Sex: Male

DRUGS (3)
  1. FUROSEMIDE. [Suspect]
     Active Substance: FUROSEMIDE
     Indication: DIURETIC THERAPY
     Dosage: 20 MG, Q12H
  2. SEROFLO [Concomitant]
     Active Substance: FLUTICASONE PROPIONATE\SALMETEROL XINAFOATE
     Indication: ASTHMA
     Dosage: 2 PUFFS, THRICE DAILY
  3. DIGOXIN. [Suspect]
     Active Substance: DIGOXIN
     Indication: PRODUCT USED FOR UNKNOWN INDICATION
     Dosage: 0.25 MG, QD

REACTIONS (16)
  - Toxicity to various agents [Recovered/Resolved]
  - Atrioventricular block complete [Recovered/Resolved]
  - Weight decreased [Recovered/Resolved]
  - Delirium [Recovered/Resolved]
  - Visual impairment [Recovered/Resolved]
  - Urine output decreased [Recovered/Resolved]
  - Drug interaction [Recovered/Resolved]
  - Constipation [Recovered/Resolved]
  - Abdominal pain [Recovered/Resolved]
  - Decreased appetite [Recovered/Resolved]
  - Ventricular extrasystoles [Recovered/Resolved]
  - Atrial fibrillation [Recovered/Resolved]
  - Cough [Recovered/Resolved]
  - Heart disease congenital [Recovered/Resolved]
  - Dyspnoea [Recovered/Resolved]
  - Cardiac failure congestive [Recovered/Resolved]
